FAERS Safety Report 9202532 (Version 1)
Quarter: 2013Q2

REPORT INFORMATION
  Report Type: Spontaneous
  Country: US (occurrence: US)
  Receive Date: 20130401
  Receipt Date: 20130401
  Transmission Date: 20140414
  Serious: No
  Sender: FDA-Public Use
  Company Number: US-PFIZER INC-2013102190

PATIENT
  Age: 73 Year
  Sex: Female
  Weight: 104 kg

DRUGS (1)
  1. NEURONTIN [Suspect]
     Indication: FIBROMYALGIA
     Dosage: 300 MG, 2X/DAY
     Route: 048
     Dates: start: 2010

REACTIONS (2)
  - Eye disorder [Not Recovered/Not Resolved]
  - Off label use [Unknown]
